FAERS Safety Report 8181875-X (Version None)
Quarter: 2012Q1

REPORT INFORMATION
  Report Type: 
  Country: None (occurrence: None)
  Receive Date: 20120302
  Receipt Date: 20120222
  Transmission Date: 20120608
  Serious: Yes (Hospitalization)
  Sender: FDA-Public Use
  Company Number: AZ-ASTRAZENECA-2012SE13270

PATIENT
  Age: 18 Year
  Sex: Male

DRUGS (1)
  1. MEROPENEM [Suspect]
     Route: 042

REACTIONS (3)
  - BODY TEMPERATURE INCREASED [None]
  - DIARRHOEA [None]
  - BLOOD DISORDER [None]
